FAERS Safety Report 25189473 (Version 3)
Quarter: 2025Q4

REPORT INFORMATION
  Report Type: Spontaneous
  Country: EU (occurrence: EU)
  Receive Date: 20250411
  Receipt Date: 20251212
  Transmission Date: 20260118
  Serious: Yes (Life-Threatening, Hospitalization, Other)
  Sender: RANBAXY
  Company Number: EU-SUN PHARMACEUTICAL INDUSTRIES LTD-2025R1-503481

PATIENT
  Age: 18 Year
  Sex: Male

DRUGS (3)
  1. CHLORPROMAZINE [Suspect]
     Active Substance: CHLORPROMAZINE
     Indication: Sedative therapy
     Dosage: 50 MILLIGRAM PER DAY
     Route: 065
  2. MIDAZOLAM [Suspect]
     Active Substance: MIDAZOLAM
     Indication: Sedative therapy
     Dosage: 90 MILLIGRAM PER DAY
     Route: 042
  3. RISPERIDONE [Suspect]
     Active Substance: RISPERIDONE
     Indication: Sedative therapy
     Dosage: 4 MILLIGRAM PER DAY
     Route: 065

REACTIONS (1)
  - Therapy non-responder [Unknown]
